FAERS Safety Report 15584270 (Version 1)
Quarter: 2018Q4

REPORT INFORMATION
  Report Type: Spontaneous
  Country: US (occurrence: US)
  Receive Date: 20181031
  Receipt Date: 20181031
  Transmission Date: 20190205
  Serious: Yes (Hospitalization)
  Sender: FDA-Public Use
  Company Number: None

PATIENT
  Age: 66 Year
  Sex: Male
  Weight: 104.42 kg

DRUGS (15)
  1. PENTAMIDINE [Concomitant]
     Active Substance: PENTAMIDINE
  2. DITROPAN [Concomitant]
     Active Substance: OXYBUTYNIN CHLORIDE
  3. YESCARTA [Suspect]
     Active Substance: AXICABTAGENE CILOLEUCEL
     Indication: DIFFUSE LARGE B-CELL LYMPHOMA
     Dosage: ?          OTHER DOSE:2.10^8TH CAR-T CEL;OTHER FREQUENCY:ONE TIME DOSE;  IV INFUSION?
     Route: 041
     Dates: start: 20180723
  4. CYCLOPHOSPHAMIDE. [Concomitant]
     Active Substance: CYCLOPHOSPHAMIDE
  5. PEPCID [Concomitant]
     Active Substance: FAMOTIDINE
  6. DEXAMETHASONE. [Concomitant]
     Active Substance: DEXAMETHASONE
  7. FLOMAX [Concomitant]
     Active Substance: TAMSULOSIN HYDROCHLORIDE
  8. FAMVIR [Concomitant]
     Active Substance: FAMCICLOVIR
  9. ACETAMINOPHEN. [Concomitant]
     Active Substance: ACETAMINOPHEN
  10. ACETAMINOPHEN. [Concomitant]
     Active Substance: ACETAMINOPHEN
  11. CEFEPIME [Concomitant]
     Active Substance: CEFEPIME HYDROCHLORIDE
  12. FLUDARABINE [Concomitant]
     Active Substance: FLUDARABINE PHOSPHATE
  13. KEPPRA [Concomitant]
     Active Substance: LEVETIRACETAM
  14. TRANDATE [Concomitant]
     Active Substance: LABETALOL HYDROCHLORIDE
  15. DITROPAN [Concomitant]
     Active Substance: OXYBUTYNIN CHLORIDE

REACTIONS (7)
  - Neurotoxicity [None]
  - Dysgraphia [None]
  - Tremor [None]
  - Syncope [None]
  - Paranoia [None]
  - Aphasia [None]
  - Nystagmus [None]

NARRATIVE: CASE EVENT DATE: 20180808
